FAERS Safety Report 13423361 (Version 1)
Quarter: 2017Q2

REPORT INFORMATION
  Report Type: Spontaneous
  Country: IE (occurrence: IE)
  Receive Date: 20170410
  Receipt Date: 20170410
  Transmission Date: 20170830
  Serious: Yes (Other)
  Sender: FDA-Public Use
  Company Number: IE-AMGEN-IRLSP2017053948

PATIENT
  Age: 70 Year
  Sex: Female

DRUGS (4)
  1. POLYSORBATE 20. [Concomitant]
     Active Substance: POLYSORBATE 20
     Dosage: UNK
  2. SORBITOL. [Concomitant]
     Active Substance: SORBITOL
     Indication: OSTEOPOROSIS
     Dosage: UNK
  3. PROLIA [Suspect]
     Active Substance: DENOSUMAB
     Indication: OSTEOPOROSIS
     Dosage: 60 UNK, Q6MO
     Route: 065
  4. SODIUM HYDROXIDE. [Concomitant]
     Active Substance: SODIUM HYDROXIDE
     Dosage: UNK

REACTIONS (6)
  - Hypoaesthesia [Not Recovered/Not Resolved]
  - Muscle spasms [Not Recovered/Not Resolved]
  - Groin pain [Not Recovered/Not Resolved]
  - Skin swelling [Not Recovered/Not Resolved]
  - Rash erythematous [Not Recovered/Not Resolved]
  - Skin warm [Not Recovered/Not Resolved]
